FAERS Safety Report 13534476 (Version 1)
Quarter: 2017Q2

REPORT INFORMATION
  Report Type: Spontaneous
  Country: US (occurrence: US)
  Receive Date: 20170510
  Receipt Date: 20170510
  Transmission Date: 20170830
  Serious: No
  Sender: FDA-Public Use
  Company Number: None

PATIENT
  Age: 63 Year
  Sex: Male

DRUGS (1)
  1. SUTENT [Suspect]
     Active Substance: SUNITINIB MALATE
     Indication: RENAL CANCER
     Dosage: 50 MG ONCE DAIL FOR 28 DAYS THEN 14 DAYS OFF ORAL
     Route: 048
     Dates: start: 20170127

REACTIONS (2)
  - Epistaxis [None]
  - Rectal haemorrhage [None]

NARRATIVE: CASE EVENT DATE: 20170509
